APPROVED DRUG PRODUCT: NYSTATIN AND TRIAMCINOLONE ACETONIDE
Active Ingredient: NYSTATIN; TRIAMCINOLONE ACETONIDE
Strength: 100,000 UNITS/GM;0.1%
Dosage Form/Route: CREAM;TOPICAL
Application: A062347 | Product #001
Applicant: SUN PHARMA CANADA INC
Approved: Mar 30, 1987 | RLD: No | RS: No | Type: DISCN